FAERS Safety Report 4872360-9 (Version None)
Quarter: 2005Q4

REPORT INFORMATION
  Report Type: 
  Country: None (occurrence: None)
  Receive Date: 20051115
  Receipt Date: 20050817
  Transmission Date: 20060501
  Serious: Yes (Other)
  Sender: FDA-Public Use
  Company Number: 414801

PATIENT
  Sex: Female

DRUGS (4)
  1. PEGASYS [Suspect]
     Dosage: OTHER
     Route: 050
     Dates: end: 20040615
  2. COPEGUS [Suspect]
     Dosage: ORAL
     Route: 048
     Dates: end: 20040615
  3. LITHIUM (LITHIUM NOS) [Concomitant]
  4. VICODIN [Concomitant]

REACTIONS (4)
  - DELUSION [None]
  - HALLUCINATION, AUDITORY [None]
  - HALLUCINATION, VISUAL [None]
  - MENTAL DISORDER [None]
